FAERS Safety Report 6544777-8 (Version None)
Quarter: 2010Q1

REPORT INFORMATION
  Report Type: 
  Country: None (occurrence: None)
  Receive Date: 20100121
  Receipt Date: 20100104
  Transmission Date: 20100710
  Serious: Yes (Death)
  Sender: FDA-Public Use
  Company Number: US-BAYER-201011871GPV

PATIENT
  Age: 23 Year
  Sex: Female

DRUGS (8)
  1. ALPRAZOLAM [Suspect]
     Route: 048
  2. NAPROXEN [Suspect]
     Route: 048
  3. ACETAMINOPHEN [Suspect]
     Route: 048
  4. GABAPENTIN [Suspect]
     Route: 048
  5. PAROXETINE HCL [Suspect]
     Route: 048
  6. FLUOXETINE [Suspect]
     Route: 048
  7. ZOLPIDEM [Suspect]
     Route: 048
  8. OPIOIDS [Suspect]
     Route: 048

REACTIONS (1)
  - DRUG TOXICITY [None]
